FAERS Safety Report 7047038-6 (Version None)
Quarter: 2010Q4

REPORT INFORMATION
  Report Type: 
  Country: None (occurrence: None)
  Receive Date: 20101012
  Receipt Date: 20100827
  Transmission Date: 20110411
  Serious: Yes (Death)
  Sender: FDA-Public Use
  Company Number: 2010-3438

PATIENT
  Age: 71 Year
  Sex: Male
  Weight: 87 kg

DRUGS (2)
  1. APO-GO PEN (APO-GO) (APOMORPHINE HYDROCHLORIDE) (APOMORPHINE HYDROCHLO [Suspect]
     Indication: PARKINSON'S DISEASE
     Dosage: (3 MG,PRN),SUBCUTANEOUS
     Route: 058
     Dates: start: 20060321, end: 20060405
  2. APO-GO AMPOULES (APO-GO) (APOMORPHINE HYDROCHLORIDE) (APOMORPHINE HYDR [Suspect]
     Indication: PARKINSON'S DISEASE
     Dosage: (3 MG,1 IN 1 HR),SUBCUTANEOUS
     Route: 058
     Dates: start: 20060405, end: 20060701

REACTIONS (6)
  - CONDITION AGGRAVATED [None]
  - DEMENTIA [None]
  - GLIOBLASTOMA MULTIFORME [None]
  - HALLUCINATION [None]
  - PSYCHOTIC DISORDER [None]
  - SOMNOLENCE [None]
